FAERS Safety Report 18230446 (Version 3)
Quarter: 2020Q3

REPORT INFORMATION
  Report Type: Spontaneous
  Country: CO (occurrence: CO)
  Receive Date: 20200903
  Receipt Date: 20200928
  Transmission Date: 20201103
  Serious: Yes (Hospitalization)
  Sender: FDA-Public Use
  Company Number: CO-BIOMARINAP-CO-2020-132115

PATIENT
  Age: 6 Year
  Sex: Female
  Weight: 12 kg

DRUGS (1)
  1. VIMIZIM [Suspect]
     Active Substance: ELOSULFASE ALFA
     Indication: MUCOPOLYSACCHARIDOSIS IV
     Dosage: 24 MILLIGRAM, QW
     Route: 042
     Dates: start: 201904

REACTIONS (2)
  - Plasma cell myeloma [Unknown]
  - Myelopathy [Unknown]
